FAERS Safety Report 24582250 (Version 1)
Quarter: 2024Q4

REPORT INFORMATION
  Report Type: Spontaneous
  Country: US (occurrence: US)
  Receive Date: 20241105
  Receipt Date: 20241105
  Transmission Date: 20250115
  Serious: No
  Sender: BRISTOL-MYERS SQUIBB COMPANY
  Company Number: US-BRISTOL-MYERS SQUIBB COMPANY-2024-168393

PATIENT
  Age: 71 Year
  Sex: Female

DRUGS (1)
  1. AUGTYRO [Suspect]
     Active Substance: REPOTRECTINIB
     Indication: Product used for unknown indication
     Dosage: FREQUENCY: 2 CAPSULES BY MOUTH ONCE DAILY
     Route: 048

REACTIONS (3)
  - Restless legs syndrome [Unknown]
  - Paraesthesia [Unknown]
  - Off label use [Unknown]
